FAERS Safety Report 19006175 (Version 1)
Quarter: 2021Q1

REPORT INFORMATION
  Report Type: Spontaneous
  Country: US (occurrence: US)
  Receive Date: 20210315
  Receipt Date: 20210315
  Transmission Date: 20210420
  Serious: No
  Sender: FDA-Public Use
  Company Number: US-ASTRAZENECA-2021A102738

PATIENT
  Sex: Female
  Weight: 97.5 kg

DRUGS (2)
  1. BYDUREON BCISE [Suspect]
     Active Substance: EXENATIDE
     Indication: DIABETES MELLITUS
     Route: 065
     Dates: start: 2020
  2. BYDUREON [Suspect]
     Active Substance: EXENATIDE
     Indication: DIABETES MELLITUS
     Route: 065
     Dates: start: 20210301

REACTIONS (5)
  - Injection site haemorrhage [Unknown]
  - Injection site injury [Unknown]
  - Wrong technique in device usage process [Unknown]
  - Pain in extremity [Unknown]
  - Drug delivery system malfunction [Unknown]
